FAERS Safety Report 10506882 (Version 1)
Quarter: 2014Q3

REPORT INFORMATION
  Report Type: Spontaneous
  Country: US (occurrence: None)
  Receive Date: 20140915
  Receipt Date: 20140915
  Transmission Date: 20150326
  Serious: Yes (Other)
  Sender: FDA-Public Use
  Company Number: 2013-US-001798

PATIENT
  Age: 36 Year
  Sex: Female
  Weight: 95.2 kg

DRUGS (7)
  1. SAVELLA [Concomitant]
     Active Substance: MILNACIPRAN HYDROCHLORIDE
  2. ELAVIL [Concomitant]
     Active Substance: AMITRIPTYLINE HYDROCHLORIDE
  3. XYREM [Suspect]
     Active Substance: SODIUM OXYBATE
     Indication: CATAPLEXY
     Route: 048
     Dates: start: 20130516, end: 2013
  4. PROPRANOLOL (PROPRANOLOL HYDROCHLORIDE) [Concomitant]
  5. SUMATRIPTAN (SUMATRIPTAN SUCCINATE) [Concomitant]
  6. PERCOCET (OXYCODONE HYDROCHLORIDE, OXYCODONE TEREPHTHALATE, PARACETAMOL) [Concomitant]
  7. OXYCONTIN [Concomitant]
     Active Substance: OXYCODONE HYDROCHLORIDE

REACTIONS (2)
  - Fall [None]
  - Ankle fracture [None]

NARRATIVE: CASE EVENT DATE: 20130926
